FAERS Safety Report 5393470-6 (Version None)
Quarter: 2007Q3

REPORT INFORMATION
  Report Type: 
  Country: None (occurrence: None)
  Receive Date: 20070723
  Receipt Date: 20060621
  Transmission Date: 20080115
  Serious: No
  Sender: FDA-Public Use
  Company Number: A0608808A

PATIENT
  Age: 53 Year
  Sex: Female

DRUGS (5)
  1. AVANDIA [Suspect]
     Dosage: 2MG TWICE PER DAY
     Route: 048
     Dates: start: 20060609
  2. METFORMIN HCL [Suspect]
     Dosage: 1000MG TWICE PER DAY
     Dates: start: 20060609
  3. DIOVAN [Concomitant]
  4. GLIPIZIDE [Concomitant]
  5. ASPIRIN [Concomitant]

REACTIONS (2)
  - BLOOD GLUCOSE INCREASED [None]
  - DRUG INEFFECTIVE [None]
